FAERS Safety Report 9254013 (Version 1)
Quarter: 2013Q1

REPORT INFORMATION
  Report Type: Spontaneous
  Country: US (occurrence: None)
  Receive Date: 20121211
  Receipt Date: 20121211
  Transmission Date: 20140127
  Serious: Yes (Other)
  Sender: FDA-Public Use
  Company Number: 1209USA004071

PATIENT
  Sex: Male

DRUGS (3)
  1. ISENTRESS [Suspect]
     Route: 048
  2. KIVEXA [Suspect]
     Route: 048
  3. EXFORGE [Suspect]
     Route: 048

REACTIONS (1)
  - Depression [None]
